FAERS Safety Report 16217808 (Version 1)
Quarter: 2019Q2

REPORT INFORMATION
  Report Type: Spontaneous
  Country: US (occurrence: US)
  Receive Date: 20190419
  Receipt Date: 20190419
  Transmission Date: 20190711
  Serious: No
  Sender: FDA-Public Use
  Company Number: US-SA-2019SA104022

PATIENT
  Sex: Female

DRUGS (1)
  1. ACT KIDS ANTICAVITY FLUORIDE PINEAPPLE PUNCH [Suspect]
     Active Substance: SODIUM FLUORIDE
     Route: 048

REACTIONS (1)
  - Product taste abnormal [Unknown]
